FAERS Safety Report 25594609 (Version 1)
Quarter: 2025Q3

REPORT INFORMATION
  Report Type: Spontaneous
  Country: US (occurrence: US)
  Receive Date: 20250723
  Receipt Date: 20250723
  Transmission Date: 20251020
  Serious: No
  Sender: CIPLA
  Company Number: US-CIPLA LTD.-2025US08827

PATIENT

DRUGS (1)
  1. LENALIDOMIDE [Suspect]
     Active Substance: LENALIDOMIDE
     Route: 050
     Dates: start: 20230404

REACTIONS (3)
  - Maternal exposure via partner during pregnancy [Unknown]
  - Exposure via body fluid [Unknown]
  - Foetal exposure via father [Unknown]
